FAERS Safety Report 9948318 (Version 1)
Quarter: 2014Q1

REPORT INFORMATION
  Report Type: Spontaneous
  Country: US (occurrence: None)
  Receive Date: 20140122
  Receipt Date: 20140122
  Transmission Date: 20141002
  Serious: Yes (Other)
  Sender: FDA-Public Use
  Company Number: AP356-00164-SPO-US

PATIENT
  Age: 64 Year
  Sex: Female

DRUGS (6)
  1. BELVIQ (LORCASERIN HYDROCHLORIDE) [Suspect]
     Indication: WEIGHT CONTROL
     Route: 048
     Dates: start: 201309, end: 20131013
  2. CRESTOR (ROSUVASTATIN) [Concomitant]
  3. GINGKO BILOBA (GINKGO BILOBA) [Concomitant]
  4. VITAMIN D (ERGOCALCIFEROL) [Concomitant]
  5. LUTEIN (XANTOFYL) [Concomitant]
  6. MULTIVITAMIN (VIGRAN) (ERGOCALCIFEOL, ASCORBIC ACID, PYRIDOXINE HYDROCHLORIDE, THIAMINE HYDROCHLORIDE, RETINOL, RIBOFLAVIN, NICOTINAMIDE, CALCIUM PANTHOTHENATE) [Concomitant]

REACTIONS (3)
  - Aphasia [None]
  - Daydreaming [None]
  - Fatigue [None]
